FAERS Safety Report 6063221-0 (Version None)
Quarter: 2009Q1

REPORT INFORMATION
  Report Type: 
  Country: None (occurrence: None)
  Receive Date: 20090203
  Receipt Date: 20090122
  Transmission Date: 20090719
  Serious: Yes (Other)
  Sender: FDA-Public Use
  Company Number: US-PFIZER INC-2008046664

PATIENT
  Sex: Female
  Weight: 60.8 kg

DRUGS (2)
  1. LYRICA [Suspect]
     Dosage: 50 MG, 3X/DAY
     Route: 048
     Dates: start: 20080201, end: 20080501
  2. SEPTRA [Concomitant]
     Indication: INFECTION

REACTIONS (21)
  - AGEUSIA [None]
  - ALOPECIA TOTALIS [None]
  - ANOREXIA [None]
  - ANOSMIA [None]
  - BACK PAIN [None]
  - BODY HEIGHT DECREASED [None]
  - DEPRESSED MOOD [None]
  - DRY MOUTH [None]
  - DYSGEUSIA [None]
  - DYSPHAGIA [None]
  - GAIT DISTURBANCE [None]
  - GASTRITIS [None]
  - HAEMATURIA [None]
  - MADAROSIS [None]
  - ONYCHOLYSIS [None]
  - PREMATURE AGEING [None]
  - SOCIAL AVOIDANT BEHAVIOUR [None]
  - STRESS [None]
  - SUBCUTANEOUS ABSCESS [None]
  - URINARY TRACT INFECTION [None]
  - WEIGHT DECREASED [None]
